FAERS Safety Report 8989413 (Version 1)
Quarter: 2012Q4

REPORT INFORMATION
  Report Type: 
  Country: US (occurrence: US)
  Receive Date: 20121228
  Receipt Date: 20121228
  Transmission Date: 20130627
  Serious: No
  Sender: FDA-Public Use
  Company Number: US-009507513-1212USA008681

PATIENT

DRUGS (1)
  1. EMEND [Suspect]
     Dosage: 150 mg, UNK
     Route: 042

REACTIONS (2)
  - Pain in extremity [Unknown]
  - Wrong technique in drug usage process [Unknown]
